FAERS Safety Report 24592877 (Version 1)
Quarter: 2024Q4

REPORT INFORMATION
  Report Type: Spontaneous
  Country: CN (occurrence: CN)
  Receive Date: 20241108
  Receipt Date: 20241108
  Transmission Date: 20250115
  Serious: Yes (Other)
  Sender: QUAGEN PHARMACEUTICALS
  Company Number: CN-QUAGEN-2024QUALIT00366

PATIENT

DRUGS (1)
  1. LIDOCAINE [Suspect]
     Active Substance: LIDOCAINE
     Indication: Infiltration anaesthesia
     Route: 065

REACTIONS (2)
  - Anaphylactic reaction [Unknown]
  - Blood pressure decreased [Unknown]
